FAERS Safety Report 6691843-2 (Version None)
Quarter: 2010Q2

REPORT INFORMATION
  Report Type: 
  Country: None (occurrence: None)
  Receive Date: 20100422
  Receipt Date: 20100412
  Transmission Date: 20101027
  Serious: Yes (Other)
  Sender: FDA-Public Use
  Company Number: PHEH2006US11430

PATIENT
  Sex: Male

DRUGS (23)
  1. AREDIA [Suspect]
     Indication: MULTIPLE MYELOMA
  2. ZOMETA [Suspect]
     Indication: MULTIPLE MYELOMA
  3. ATIVAN [Concomitant]
  4. WELLBUTRIN [Concomitant]
  5. NEURONTIN [Concomitant]
  6. AMPICILLIN [Concomitant]
  7. PROCRIT                            /00909301/ [Concomitant]
  8. THALIDOMIDE [Concomitant]
  9. COUMADIN [Concomitant]
  10. DIOVAN [Concomitant]
  11. LASIX [Concomitant]
  12. PRILOSEC [Concomitant]
  13. LIPITOR [Concomitant]
  14. ANDROGEL [Concomitant]
  15. LANOXIN [Concomitant]
  16. AVANDIA [Concomitant]
  17. RESTORIL [Suspect]
  18. DILTIAZEM HCL [Concomitant]
  19. COLACE [Concomitant]
  20. DULCOLAX [Concomitant]
  21. ASPIRIN [Concomitant]
  22. VITAMIN B6 [Concomitant]
  23. VITAMIN B-12 [Concomitant]

REACTIONS (15)
  - ANXIETY [None]
  - BONE DISORDER [None]
  - DEBRIDEMENT [None]
  - DECREASED INTEREST [None]
  - DEFORMITY [None]
  - EMOTIONAL DISTRESS [None]
  - GENERAL PHYSICAL HEALTH DETERIORATION [None]
  - HYPOPHAGIA [None]
  - INFECTION [None]
  - INJURY [None]
  - LIFE EXPECTANCY SHORTENED [None]
  - OSTEOMYELITIS [None]
  - OSTEONECROSIS [None]
  - PAIN [None]
  - TOOTH EXTRACTION [None]
